FAERS Safety Report 8044567-3 (Version None)
Quarter: 2012Q1

REPORT INFORMATION
  Report Type: 
  Country: None (occurrence: None)
  Receive Date: 20120113
  Receipt Date: 20120113
  Transmission Date: 20120608
  Serious: No
  Sender: FDA-Public Use
  Company Number: None

PATIENT
  Age: 26 Year
  Sex: Female
  Weight: 78.471 kg

DRUGS (1)
  1. GAS-X [Suspect]
     Indication: FLATULENCE
     Dosage: TWO PILLS
     Route: 048
     Dates: start: 20120103, end: 20120103

REACTIONS (4)
  - GAIT DISTURBANCE [None]
  - FALL [None]
  - DISORIENTATION [None]
  - APHASIA [None]
